FAERS Safety Report 7522467-2 (Version None)
Quarter: 2011Q2

REPORT INFORMATION
  Report Type: 
  Country: None (occurrence: None)
  Receive Date: 20110603
  Receipt Date: 20110527
  Transmission Date: 20111010
  Serious: Yes (Death, Other)
  Sender: FDA-Public Use
  Company Number: JP-ROCHE-731371

PATIENT
  Sex: Male

DRUGS (8)
  1. PEGASYS [Suspect]
     Route: 058
     Dates: start: 20100802, end: 20100908
  2. COPEGUS [Suspect]
     Route: 048
     Dates: start: 20100802, end: 20100914
  3. PEGASYS [Suspect]
     Indication: HEPATITIS C
     Route: 058
     Dates: start: 20100531, end: 20100719
  4. COPEGUS [Suspect]
     Indication: HEPATITIS C
     Route: 048
     Dates: start: 20100531, end: 20100726
  5. MUCOSTA [Concomitant]
     Dosage: SINGLE USE
     Route: 048
     Dates: start: 20100531, end: 20100614
  6. LOXONIN [Concomitant]
     Dosage: DOSE: 1 DF, SINGLE USE
     Route: 048
     Dates: start: 20100531, end: 20100614
  7. NOVORAPID [Concomitant]
     Route: 058
  8. NOVORAPID [Concomitant]
     Route: 058

REACTIONS (3)
  - PNEUMONIA [None]
  - WHITE BLOOD CELL COUNT DECREASED [None]
  - NEUTROPHIL COUNT DECREASED [None]
